FAERS Safety Report 4942947-3 (Version None)
Quarter: 2006Q1

REPORT INFORMATION
  Report Type: 
  Country: None (occurrence: None)
  Receive Date: 20060309
  Receipt Date: 20060228
  Transmission Date: 20060701
  Serious: No
  Sender: FDA-Public Use
  Company Number: 06H-153-0306077-00

PATIENT
  Sex: Female

DRUGS (4)
  1. MORPHINE SULFATE INJ [Suspect]
     Indication: SPINAL ANAESTHESIA
     Dosage: 150 MCG, INTRATHECAL
     Route: 037
  2. 0.5% HYPERBARIC BUPIVACAINE (BUPIVACAINE) [Suspect]
     Indication: SPINAL ANAESTHESIA
     Dosage: 10-12 MG INTRATHECAL
     Route: 037
  3. HARTMANN'S SOLUTION (RINGER-L-ACTATE SOLUTION ^FRESENIUS^) [Concomitant]
  4. OXYTOCIN [Concomitant]

REACTIONS (1)
  - PROCEDURAL HYPOTENSION [None]
